FAERS Safety Report 4482048-4 (Version None)
Quarter: 2004Q4

REPORT INFORMATION
  Report Type: 
  Country: None (occurrence: None)
  Receive Date: 20041020
  Receipt Date: 20041020
  Transmission Date: 20050328
  Serious: Yes (Other)
  Sender: FDA-Public Use
  Company Number: None

PATIENT
  Age: 61 Year
  Sex: Female
  Weight: 58.9676 kg

DRUGS (1)
  1. VIOXX [Suspect]
     Indication: ARTHRALGIA
     Dosage: 1ADAY
     Dates: start: 20030615, end: 20040601

REACTIONS (4)
  - DYSPNOEA [None]
  - HYPERHIDROSIS [None]
  - RESPIRATORY TRACT CONGESTION [None]
  - SPEECH DISORDER [None]
